FAERS Safety Report 12025442 (Version 1)
Quarter: 2016Q1

REPORT INFORMATION
  Report Type: Report from Study
  Country: US (occurrence: US)
  Receive Date: 20160206
  Receipt Date: 20160206
  Transmission Date: 20160526
  Serious: No
  Sender: FDA-Public Use
  Company Number: US-ABBVIE-15K-163-1482136-00

PATIENT
  Age: 26 Year
  Sex: Male

DRUGS (2)
  1. HUMIRA [Suspect]
     Active Substance: ADALIMUMAB
     Route: 065
  2. HUMIRA [Suspect]
     Active Substance: ADALIMUMAB
     Indication: COLITIS ULCERATIVE
     Route: 065
     Dates: start: 20150327

REACTIONS (3)
  - Upper limb fracture [Recovered/Resolved with Sequelae]
  - Colitis ulcerative [Recovered/Resolved]
  - Osteogenesis imperfecta [Recovering/Resolving]

NARRATIVE: CASE EVENT DATE: 20150816
